FAERS Safety Report 22103984 (Version 1)
Quarter: 2023Q1

REPORT INFORMATION
  Report Type: Spontaneous
  Country: GB (occurrence: GB)
  Receive Date: 20230316
  Receipt Date: 20230316
  Transmission Date: 20230418
  Serious: Yes (Life-Threatening, Other)
  Sender: FDA-Public Use
  Company Number: GB-JNJFOC-20230337148

PATIENT
  Age: 78 Year
  Sex: Female

DRUGS (1)
  1. YONDELIS [Suspect]
     Active Substance: TRABECTEDIN
     Indication: Leiomyosarcoma
     Route: 065
     Dates: start: 202005

REACTIONS (5)
  - Dyspnoea [Unknown]
  - Left ventricular dysfunction [Unknown]
  - Cardiac failure [Unknown]
  - Mitral valve incompetence [Unknown]
  - Left ventricular dilatation [Unknown]
